FAERS Safety Report 11372495 (Version 1)
Quarter: 2015Q3

REPORT INFORMATION
  Report Type: Spontaneous
  Country: US (occurrence: US)
  Receive Date: 20150811
  Receipt Date: 20150811
  Transmission Date: 20151125
  Serious: No
  Sender: FDA-Public Use
  Company Number: US-ELI_LILLY_AND_COMPANY-US201211008946

PATIENT
  Age: 60 Year
  Sex: Male

DRUGS (4)
  1. LIPITOR [Concomitant]
     Active Substance: ATORVASTATIN CALCIUM
     Dosage: 10 MG, UNK
  2. CIALIS [Concomitant]
     Active Substance: TADALAFIL
     Dosage: UNK, PRN
  3. AXIRON [Suspect]
     Active Substance: TESTOSTERONE
     Dosage: UNK
     Dates: start: 20121127
  4. AXIRON [Suspect]
     Active Substance: TESTOSTERONE
     Indication: BLOOD TESTOSTERONE DECREASED
     Dosage: 60 MG, UNK
     Dates: start: 201209, end: 201211

REACTIONS (2)
  - Alopecia [Unknown]
  - Intentional product misuse [Unknown]
